FAERS Safety Report 5941236-8 (Version None)
Quarter: 2008Q4

REPORT INFORMATION
  Report Type: 
  Country: None (occurrence: None)
  Receive Date: 20081104
  Receipt Date: 20081104
  Transmission Date: 20090506
  Serious: No
  Sender: FDA-Public Use
  Company Number: None

PATIENT
  Sex: Female
  Weight: 120.6568 kg

DRUGS (1)
  1. PANTOPRAZOLE SODIUM [Suspect]
     Indication: GASTROOESOPHAGEAL REFLUX DISEASE
     Dosage: 40MG DAILY P.O.
     Route: 048
     Dates: start: 20081017, end: 20081027

REACTIONS (2)
  - PRODUCT QUALITY ISSUE [None]
  - VOMITING [None]
